FAERS Safety Report 6085125-X (Version None)
Quarter: 2009Q1

REPORT INFORMATION
  Report Type: 
  Country: None (occurrence: None)
  Receive Date: 20090220
  Receipt Date: 20090211
  Transmission Date: 20090719
  Serious: Yes (Other)
  Sender: FDA-Public Use
  Company Number: PHHY2009DE02257

PATIENT
  Sex: Female
  Weight: 68 kg

DRUGS (10)
  1. FEMARA [Suspect]
     Indication: BREAST CANCER
     Dosage: 2.5 MG DAILY
     Route: 048
     Dates: start: 20050401
  2. EUTHYROX [Concomitant]
     Indication: HYPOTHYROIDISM
     Dosage: 75 UG
  3. SELENIUM [Concomitant]
  4. ANTIHYPERTENSIVES [Concomitant]
  5. BETA BLOCKING AGENTS [Concomitant]
  6. METOPROLOL TARTRATE [Concomitant]
     Indication: HYPERTENSION
     Dosage: 95 MG DAILY
     Route: 048
     Dates: start: 20051001
  7. ENAHEXAL COMP. [Concomitant]
     Indication: HYPERTENSION
     Dosage: 10/25 MG DAILY
     Route: 048
     Dates: start: 20030701
  8. FELODIPINE [Concomitant]
     Indication: HYPERTENSION
     Dosage: 10 MG DAILY
     Route: 048
     Dates: start: 20071101
  9. ENALAPRIL MALEATE [Concomitant]
     Indication: HYPERTENSION
     Dosage: 10 MG DAILY
     Route: 048
     Dates: start: 20071101
  10. OMEPRAZOLE [Concomitant]
     Indication: REFLUX OESOPHAGITIS
     Dosage: 40 MG DAILY
     Route: 048
     Dates: start: 20030901

REACTIONS (7)
  - ARTHRALGIA [None]
  - BLOOD CHOLESTEROL INCREASED [None]
  - HEPATIC ENZYME INCREASED [None]
  - HEPATIC STEATOSIS [None]
  - HOT FLUSH [None]
  - LIVER DISORDER [None]
  - WEIGHT INCREASED [None]
